FAERS Safety Report 5197181-1 (Version None)
Quarter: 2006Q4

REPORT INFORMATION
  Report Type: 
  Country: None (occurrence: None)
  Receive Date: 20061227
  Receipt Date: 20061215
  Transmission Date: 20070319
  Serious: Yes (Hospitalization, Other)
  Sender: FDA-Public Use
  Company Number: 2006154023

PATIENT
  Age: 27 Year
  Sex: Male

DRUGS (13)
  1. ALPRAZOLAM [Suspect]
     Indication: SOCIAL PHOBIA
     Dosage: ORAL
     Route: 048
     Dates: start: 19990701, end: 20040310
  2. OXAZEPAM [Suspect]
  3. IMOVANE (ZOPICLONE) [Suspect]
  4. VALIUM [Suspect]
  5. DIAZEPAM [Concomitant]
  6. VIVAL (DIAZEPAM) [Concomitant]
  7. ZOPICLONE (ZOPICLONE) [Concomitant]
  8. STILNOCT (ZOLPIDEM TARTRATE) [Concomitant]
  9. APOREX (DEXTEOPROPOXYPHENE HYDROCHLORIDE, PARACETAMOL) [Concomitant]
  10. PARALGIN FORTE (CODEINE PHOSPHATE, PARACETAMOL) [Concomitant]
  11. SOLVIPECT COMP (AMMONIUM CHLORIDE, ETHYLMORPHINE HYDROCHLORIDE, GLYCYR [Concomitant]
  12. ROHYPNOL (FLUNITRAZEPAM) [Concomitant]
  13. ALCOHOL (ETHANOL) [Concomitant]

REACTIONS (18)
  - ABNORMAL BEHAVIOUR [None]
  - AGGRESSION [None]
  - ALCOHOL USE [None]
  - ANGER [None]
  - BLOOD CHOLESTEROL INCREASED [None]
  - DEPRESSION [None]
  - DRUG ABUSER [None]
  - DRUG DEPENDENCE [None]
  - DRUG LEVEL INCREASED [None]
  - HYPERTENSION [None]
  - IMPULSIVE BEHAVIOUR [None]
  - INTENTIONAL DRUG MISUSE [None]
  - MENTAL DISORDER [None]
  - OVERDOSE [None]
  - PERSONALITY CHANGE [None]
  - SEXUAL ABUSE [None]
  - SUICIDAL IDEATION [None]
  - WEIGHT INCREASED [None]
